FAERS Safety Report 5518553-9 (Version None)
Quarter: 2007Q4

REPORT INFORMATION
  Report Type: 
  Country: None (occurrence: None)
  Receive Date: 20071115
  Receipt Date: 20071105
  Transmission Date: 20080405
  Serious: Yes (Other)
  Sender: FDA-Public Use
  Company Number: JP-JNJFOC-20071101874

PATIENT
  Age: 47 Year
  Sex: Female

DRUGS (3)
  1. ITRIZOLE [Suspect]
     Dosage: PULSE THERAPY
     Route: 048
  2. ITRIZOLE [Suspect]
     Dosage: PULSE THERAPY
     Route: 048
  3. ITRIZOLE [Suspect]
     Indication: DRUG USE FOR UNKNOWN INDICATION
     Route: 048

REACTIONS (1)
  - BLOOD TRIGLYCERIDES INCREASED [None]
